FAERS Safety Report 8082524-1 (Version None)
Quarter: 2012Q1

REPORT INFORMATION
  Report Type: 
  Country: None (occurrence: None)
  Receive Date: 20120127
  Receipt Date: 20110218
  Transmission Date: 20120608
  Serious: No
  Sender: FDA-Public Use
  Company Number: US-ABBOTT-11P-163-0706743-00

PATIENT
  Sex: Female
  Weight: 97.156 kg

DRUGS (7)
  1. SINGULAIR [Concomitant]
     Indication: HYPERSENSITIVITY
  2. VERAPAMIL [Concomitant]
     Indication: ORTHOSTATIC HYPOTENSION
  3. ZYRTEC [Concomitant]
     Indication: HYPERSENSITIVITY
  4. HUMIRA [Suspect]
     Indication: CROHN'S DISEASE
     Dates: start: 20100101
  5. FLONASE [Concomitant]
     Indication: HYPERSENSITIVITY
  6. ELAVIL [Concomitant]
     Indication: FIBROMYALGIA
  7. FLORINEF [Concomitant]
     Indication: ORTHOSTATIC HYPOTENSION

REACTIONS (2)
  - ARTHRALGIA [None]
  - ILL-DEFINED DISORDER [None]
